FAERS Safety Report 6647057-5 (Version None)
Quarter: 2010Q1

REPORT INFORMATION
  Report Type: 
  Country: None (occurrence: None)
  Receive Date: 20100318
  Receipt Date: 20100309
  Transmission Date: 20100710
  Serious: Yes (Congenital Anomaly)
  Sender: FDA-Public Use
  Company Number: 008220

PATIENT
  Sex: Female
  Weight: 11.7 kg

DRUGS (4)
  1. KEPPRA [Suspect]
     Indication: EPILEPSY
     Dosage: (750 MG, THE MOTHER TOOK KEPPRA PO PRIOR TO CONCEPTION TO DELIVERY TRANSPLACENTAL)
     Route: 064
  2. FOLIC ACID [Concomitant]
  3. DAILY MULTIVITAMIN [Concomitant]
  4. CALCIUM [Concomitant]

REACTIONS (4)
  - CHROMOSOME ANALYSIS ABNORMAL [None]
  - CONGENITAL BOWING OF LONG BONES [None]
  - HYPOPHOSPHATAEMIC RICKETS [None]
  - MATERNAL DRUGS AFFECTING FOETUS [None]
